FAERS Safety Report 14753331 (Version 1)
Quarter: 2018Q2

REPORT INFORMATION
  Report Type: Spontaneous
  Country: US (occurrence: US)
  Receive Date: 20180412
  Receipt Date: 20180412
  Transmission Date: 20180711
  Serious: No
  Sender: FDA-Public Use
  Company Number: US-ALLERGAN-1726653US

PATIENT
  Age: 73 Year
  Sex: Female

DRUGS (1)
  1. FEMRING [Suspect]
     Active Substance: ESTRADIOL ACETATE
     Indication: PROPHYLAXIS URINARY TRACT INFECTION
     Dosage: 0.10 MG, QD
     Route: 067
     Dates: start: 2017, end: 20170716

REACTIONS (4)
  - Off label use [Unknown]
  - Device expulsion [Unknown]
  - Drug dose omission [Unknown]
  - Constipation [Unknown]

NARRATIVE: CASE EVENT DATE: 20170616
